FAERS Safety Report 17575783 (Version 5)
Quarter: 2020Q2

REPORT INFORMATION
  Report Type: Spontaneous
  Country: US (occurrence: US)
  Receive Date: 20200324
  Receipt Date: 20200630
  Transmission Date: 20200713
  Serious: Yes (Other)
  Sender: FDA-Public Use
  Company Number: US-UCBSA-2019055119

PATIENT
  Age: 52 Year
  Sex: Female
  Weight: 74.3 kg

DRUGS (3)
  1. CIMZIA [Suspect]
     Active Substance: CERTOLIZUMAB PEGOL
     Indication: ANKYLOSING SPONDYLITIS
     Dosage: 400 MILLIGRAM, EV 4 WEEKS
     Route: 058
     Dates: start: 20191031, end: 20200115
  2. CIMZIA [Suspect]
     Active Substance: CERTOLIZUMAB PEGOL
     Indication: SPONDYLOARTHROPATHY
  3. ESTRADIOL. [Suspect]
     Active Substance: ESTRADIOL
     Indication: MENOPAUSE
     Dosage: 2 MG DAILY
     Route: 048
     Dates: start: 201201

REACTIONS (8)
  - Therapy interrupted [Unknown]
  - Pain [Unknown]
  - Diarrhoea [Unknown]
  - Abdominal pain [Unknown]
  - Cholecystectomy [Recovered/Resolved]
  - Ankylosing spondylitis [Unknown]
  - Malabsorption [Unknown]
  - Insurance issue [Unknown]

NARRATIVE: CASE EVENT DATE: 20200228
